FAERS Safety Report 5127621-5 (Version None)
Quarter: 2006Q4

REPORT INFORMATION
  Report Type: 
  Country: None (occurrence: None)
  Receive Date: 20061011
  Receipt Date: 20060929
  Transmission Date: 20070319
  Serious: Yes (Other)
  Sender: FDA-Public Use
  Company Number: 200620205GDDC

PATIENT
  Sex: Female

DRUGS (3)
  1. ARAVA [Suspect]
     Dosage: 20 MG QD PO
     Route: 048
  2. ARAVA [Suspect]
     Dosage: 10 MG QD PO
     Route: 048
  3. METHOTREXATE [Concomitant]

REACTIONS (2)
  - CHOLESTASIS [None]
  - HEPATOCELLULAR DAMAGE [None]
